FAERS Safety Report 17572708 (Version 1)
Quarter: 2020Q1

REPORT INFORMATION
  Report Type: Spontaneous
  Country: US (occurrence: US)
  Receive Date: 20200323
  Receipt Date: 20200323
  Transmission Date: 20200409
  Serious: Yes (Death)
  Sender: FDA-Public Use
  Company Number: None

PATIENT
  Sex: Female

DRUGS (18)
  1. A-HYDROCORT [Concomitant]
     Active Substance: HYDROCORTISONE SODIUM SUCCINATE
  2. COMBIVENT [Concomitant]
     Active Substance: ALBUTEROL SULFATE\IPRATROPIUM BROMIDE
  3. ESZOPICLONE. [Concomitant]
     Active Substance: ESZOPICLONE
  4. LINEZOLID. [Concomitant]
     Active Substance: LINEZOLID
  5. HYCAMTIN [Suspect]
     Active Substance: TOPOTECAN HYDROCHLORIDE
     Indication: LUNG CARCINOMA CELL TYPE UNSPECIFIED STAGE 0
     Route: 048
     Dates: start: 20200109
  6. MEMANTINE. [Concomitant]
     Active Substance: MEMANTINE
  7. CARVEDILOL. [Concomitant]
     Active Substance: CARVEDILOL
  8. CEPHALEXIN. [Concomitant]
     Active Substance: CEPHALEXIN
  9. MEGESTROL [Concomitant]
     Active Substance: MEGESTROL
  10. HYCAMTIN [Suspect]
     Active Substance: TOPOTECAN HYDROCHLORIDE
     Indication: LUNG CARCINOMA CELL TYPE UNSPECIFIED STAGE 0
     Route: 048
     Dates: start: 20200109
  11. FEROSUL [Concomitant]
     Active Substance: FERROUS SULFATE
  12. HYDROMET [Concomitant]
     Active Substance: HOMATROPINE METHYLBROMIDE\HYDROCODONE BITARTRATE
  13. ADVAIR HFA [Concomitant]
     Active Substance: FLUTICASONE PROPIONATE\SALMETEROL XINAFOATE
  14. IPRATROPIUM [Concomitant]
     Active Substance: IPRATROPIUM
  15. APAP/CODEINE [Concomitant]
     Active Substance: ACETAMINOPHEN\CODEINE PHOSPHATE
  16. DEXAMETHASON [Concomitant]
     Active Substance: DEXAMETHASONE
  17. LATANOPROST. [Concomitant]
     Active Substance: LATANOPROST
  18. TUDORZA [Concomitant]
     Active Substance: ACLIDINIUM BROMIDE

REACTIONS (1)
  - Death [None]
